FAERS Safety Report 7984105-4 (Version None)
Quarter: 2011Q4

REPORT INFORMATION
  Report Type: 
  Country: None (occurrence: None)
  Receive Date: 20111214
  Receipt Date: 20111201
  Transmission Date: 20120403
  Serious: Yes (Other)
  Sender: FDA-Public Use
  Company Number: CRC-11-316

PATIENT
  Age: 30 Year
  Sex: Male
  Weight: 80.7403 kg

DRUGS (7)
  1. OXCARBAZEPINE [Suspect]
     Indication: CONVULSION
     Dosage: 500 MG 2X/DAY;ORALLY
     Route: 048
     Dates: start: 20070101
  2. ABILIFY [Concomitant]
  3. LEXAPRO [Concomitant]
  4. BENZTROPIN [Concomitant]
  5. KEPPRA [Concomitant]
  6. LIPITOR [Concomitant]
  7. RISPERDAL [Concomitant]

REACTIONS (2)
  - MEDICATION RESIDUE [None]
  - CONVULSION [None]
